FAERS Safety Report 20633254 (Version 14)
Quarter: 2023Q4

REPORT INFORMATION
  Report Type: Spontaneous
  Country: US (occurrence: US)
  Receive Date: 20220324
  Receipt Date: 20231228
  Transmission Date: 20240110
  Serious: No
  Sender: FDA-Public Use
  Company Number: US-PFIZER INC-202200403428

PATIENT
  Age: 80 Year
  Sex: Female
  Weight: 47.166 kg

DRUGS (5)
  1. PREMARIN [Suspect]
     Active Substance: ESTROGENS, CONJUGATED
     Indication: Urinary tract disorder
     Dosage: 0.625 UNK
     Dates: start: 199412
  2. PREMARIN [Suspect]
     Active Substance: ESTROGENS, CONJUGATED
     Indication: Menopause
     Dosage: ^0.46^ UNK
     Dates: start: 201912
  3. PREMARIN [Suspect]
     Active Substance: ESTROGENS, CONJUGATED
     Indication: Lichen sclerosus
     Dosage: 0.3, TAKE ONE A DAY
     Dates: start: 20210202
  4. PREMARIN [Suspect]
     Active Substance: ESTROGENS, CONJUGATED
     Dosage: 0.3 MG
     Route: 048
  5. PREMARIN [Suspect]
     Active Substance: ESTROGENS, CONJUGATED
     Dosage: 0.3 MG, 1X/DAY
     Dates: start: 19941001

REACTIONS (6)
  - Off label use [Unknown]
  - Vulvovaginal dryness [Unknown]
  - Vulvovaginal mycotic infection [Unknown]
  - Vulvovaginal pain [Unknown]
  - Nervousness [Unknown]
  - COVID-19 [Unknown]

NARRATIVE: CASE EVENT DATE: 20210101
